FAERS Safety Report 13209471 (Version 1)
Quarter: 2017Q1

REPORT INFORMATION
  Report Type: Spontaneous
  Country: US (occurrence: US)
  Receive Date: 20170209
  Receipt Date: 20170209
  Transmission Date: 20170428
  Serious: No
  Sender: FDA-Public Use
  Company Number: US-ALLERGAN-1638079US

PATIENT
  Sex: Female

DRUGS (1)
  1. BOTOX [Suspect]
     Active Substance: ONABOTULINUMTOXINA
     Indication: HYPERTONIC BLADDER
     Dosage: UNK, SINGLE
     Route: 043
     Dates: start: 20160302, end: 20160302

REACTIONS (3)
  - Malaise [Recovered/Resolved]
  - Arthralgia [Recovered/Resolved]
  - Chills [Recovered/Resolved]
